FAERS Safety Report 22707544 (Version 9)
Quarter: 2023Q4

REPORT INFORMATION
  Report Type: Report from Study
  Country: US (occurrence: US)
  Receive Date: 20230714
  Receipt Date: 20231208
  Transmission Date: 20240109
  Serious: Yes (Other)
  Sender: FDA-Public Use
  Company Number: US-002147023-NVSC2023US155730

PATIENT
  Age: 30 Year
  Sex: Male

DRUGS (1)
  1. KESIMPTA [Suspect]
     Active Substance: OFATUMUMAB
     Indication: Relapsing multiple sclerosis
     Dosage: 20 MG, QMO
     Route: 058
     Dates: start: 20230708

REACTIONS (8)
  - Tunnel vision [Unknown]
  - Multiple sclerosis relapse [Unknown]
  - Muscular weakness [Unknown]
  - Cluster headache [Unknown]
  - Headache [Unknown]
  - Speech disorder [Unknown]
  - Paraesthesia [Unknown]
  - Ill-defined disorder [Recovering/Resolving]

NARRATIVE: CASE EVENT DATE: 20230712
